FAERS Safety Report 22520881 (Version 1)
Quarter: 2023Q2

REPORT INFORMATION
  Report Type: Spontaneous
  Country: JP (occurrence: JP)
  Receive Date: 20230605
  Receipt Date: 20230605
  Transmission Date: 20230722
  Serious: Yes (Life-Threatening, Other)
  Sender: FDA-Public Use
  Company Number: JP-009507513-2302JPN007984

PATIENT
  Age: 68 Year
  Sex: Male

DRUGS (5)
  1. KEYTRUDA [Suspect]
     Active Substance: PEMBROLIZUMAB
     Indication: Lung adenocarcinoma
     Dosage: 200 MILLIGRAM; 13 COURSES
     Route: 042
     Dates: start: 20210719, end: 20220519
  2. CARBOPLATIN [Concomitant]
     Active Substance: CARBOPLATIN
     Indication: Lung adenocarcinoma
     Dosage: 580 MILLIGRAM
     Route: 042
     Dates: start: 20210719, end: 20211019
  3. ABRAXANE [Concomitant]
     Active Substance: PACLITAXEL
     Indication: Lung adenocarcinoma
     Dosage: 170 MILLIGRAM
     Route: 042
     Dates: start: 20210719, end: 20211026
  4. BETAMETHASONE [Concomitant]
     Active Substance: BETAMETHASONE
     Indication: Oedema
     Dosage: 2 MILLIGRAM, QD
     Route: 048
  5. BETAMETHASONE [Concomitant]
     Active Substance: BETAMETHASONE
     Dosage: 1 MILLIGRAM, QD
     Route: 048

REACTIONS (3)
  - Immune-mediated hepatitis [Recovered/Resolved]
  - Tracheobronchitis [Recovered/Resolved]
  - Product use in unapproved indication [Unknown]

NARRATIVE: CASE EVENT DATE: 20210719
